FAERS Safety Report 15293494 (Version 1)
Quarter: 2018Q3

REPORT INFORMATION
  Report Type: Spontaneous
  Country: FR (occurrence: FR)
  Receive Date: 20180820
  Receipt Date: 20180820
  Transmission Date: 20181010
  Serious: Yes (Death, Other)
  Sender: FDA-Public Use
  Company Number: FR-AUROBINDO-AUR-APL-2018-042043

PATIENT
  Age: 52 Year
  Sex: Male

DRUGS (2)
  1. PARACETAMOL [Suspect]
     Active Substance: ACETAMINOPHEN
     Indication: PRODUCT ORIGIN UNKNOWN
     Dosage: UNK
     Route: 065
     Dates: end: 2016
  2. CODEINE [Suspect]
     Active Substance: CODEINE
     Indication: PRODUCT ORIGIN UNKNOWN
     Dosage: UNK
     Route: 065
     Dates: end: 2016

REACTIONS (1)
  - Death [Fatal]

NARRATIVE: CASE EVENT DATE: 2016
